FAERS Safety Report 4719574-6 (Version None)
Quarter: 2005Q3

REPORT INFORMATION
  Report Type: 
  Country: None (occurrence: None)
  Receive Date: 20050721
  Receipt Date: 20031202
  Transmission Date: 20060218
  Serious: Yes (Other)
  Sender: FDA-Public Use
  Company Number: US-GLAXOSMITHKLINE-A0441629A

PATIENT
  Age: 80 Year
  Sex: Male

DRUGS (4)
  1. AVANDIA [Suspect]
     Dosage: 4MG PER DAY
     Route: 048
  2. LISINOPRIL [Concomitant]
  3. PROSCAR [Concomitant]
  4. VITAMIN E [Concomitant]

REACTIONS (1)
  - HAEMOGLOBIN DECREASED [None]
